FAERS Safety Report 7776693-8 (Version None)
Quarter: 2011Q3

REPORT INFORMATION
  Report Type: 
  Country: None (occurrence: None)
  Receive Date: 20110926
  Receipt Date: 20101230
  Transmission Date: 20111222
  Serious: No
  Sender: FDA-Public Use
  Company Number: US-BAYER-2011-001362

PATIENT
  Age: 79 Year
  Sex: Male

DRUGS (1)
  1. MAGNEVIST [Suspect]
     Indication: NUCLEAR MAGNETIC RESONANCE IMAGING
     Dosage: 469.01 MG/ML
     Dates: start: 20101011, end: 20101011

REACTIONS (2)
  - URTICARIA [None]
  - EYE SWELLING [None]
